FAERS Safety Report 20259968 (Version 1)
Quarter: 2021Q4

REPORT INFORMATION
  Report Type: Spontaneous
  Country: US (occurrence: US)
  Receive Date: 20211230
  Receipt Date: 20211230
  Transmission Date: 20220303
  Serious: No
  Sender: FDA-Public Use
  Company Number: US-COOPERSURGICAL, INC.-US-2020CPS003206

PATIENT
  Age: 20 Year
  Sex: Female
  Weight: 44.444 kg

DRUGS (5)
  1. PARAGARD T 380A [Suspect]
     Active Substance: COPPER
     Indication: Contraception
     Dosage: UNK
     Route: 015
     Dates: start: 20201124, end: 20201214
  2. PARAGARD T 380A [Suspect]
     Active Substance: COPPER
     Indication: Menstruation irregular
  3. LEXAPRO [Concomitant]
     Active Substance: ESCITALOPRAM OXALATE
     Indication: Anxiety
     Dosage: 10 MG, UNK
     Route: 065
  4. VITAMIN D                          /00107901/ [Concomitant]
     Indication: Factor V deficiency
     Route: 065
  5. ASPIRIN                            /00002701/ [Concomitant]
     Indication: Factor V deficiency
     Dosage: 162.5 MG, UNK
     Route: 065

REACTIONS (2)
  - Sensation of foreign body [Recovered/Resolved]
  - Device expulsion [Recovered/Resolved]

NARRATIVE: CASE EVENT DATE: 20201214
